FAERS Safety Report 7029936-2 (Version None)
Quarter: 2010Q4

REPORT INFORMATION
  Report Type: 
  Country: None (occurrence: None)
  Receive Date: 20101006
  Receipt Date: 20100412
  Transmission Date: 20110411
  Serious: Yes (Other)
  Sender: FDA-Public Use
  Company Number: US-ASTRAZENECA-2007UW21075

PATIENT
  Age: 19004 Day
  Sex: Female

DRUGS (7)
  1. SEROQUEL [Suspect]
     Dosage: 25-200 MG
     Route: 048
     Dates: start: 20070327
  2. ZESTRIL [Concomitant]
     Indication: HYPERTENSION
     Dosage: 10 MG
     Dates: start: 20070309
  3. VYTORIN [Concomitant]
     Indication: HYPERLIPIDAEMIA
     Dosage: 10/40
     Dates: start: 20070608
  4. WELLBUTRIN SR [Concomitant]
     Dosage: 150 MG
     Dates: start: 20070320
  5. EFFEXOR XR [Concomitant]
     Dosage: 75 MG
     Dates: start: 20070309
  6. ZOCOR [Concomitant]
     Dosage: 40 MG
     Dates: start: 20070327
  7. AVANDIA [Concomitant]
     Dosage: 2 MG
     Dates: start: 20070327

REACTIONS (5)
  - NEPHROPATHY [None]
  - NEUROPATHY PERIPHERAL [None]
  - RETINOPATHY [None]
  - TYPE 1 DIABETES MELLITUS [None]
  - TYPE 2 DIABETES MELLITUS [None]
